FAERS Safety Report 7778085-4 (Version None)
Quarter: 2011Q3

REPORT INFORMATION
  Report Type: 
  Country: None (occurrence: None)
  Receive Date: 20110926
  Receipt Date: 20110914
  Transmission Date: 20111222
  Serious: Yes (Other)
  Sender: FDA-Public Use
  Company Number: JP-PFIZER INC-2011225962

PATIENT
  Age: 63 Year
  Sex: Male

DRUGS (6)
  1. LEUCOVORIN CALCIUM [Suspect]
     Indication: COLON CANCER
     Route: 041
  2. CAMPTOSAR [Suspect]
     Indication: COLON CANCER
     Route: 041
  3. EFUDEX [Concomitant]
     Indication: COLON CANCER
     Route: 040
  4. EFUDEX [Concomitant]
     Route: 041
  5. AVASTIN [Concomitant]
     Indication: COLON CANCER
     Route: 041
  6. OXALIPLATIN [Suspect]
     Indication: COLON CANCER
     Route: 041

REACTIONS (1)
  - HEPATIC FAILURE [None]
